FAERS Safety Report 6728424-8 (Version None)
Quarter: 2010Q2

REPORT INFORMATION
  Report Type: 
  Country: None (occurrence: None)
  Receive Date: 20100517
  Receipt Date: 20100504
  Transmission Date: 20101027
  Serious: Yes (Hospitalization, Other)
  Sender: FDA-Public Use
  Company Number: US-ELI_LILLY_AND_COMPANY-US201005003451

PATIENT
  Sex: Female

DRUGS (6)
  1. FORTEO [Suspect]
     Indication: OSTEOPOROSIS
     Dosage: 20 UG, DAILY (1/D)
     Dates: start: 20100315, end: 20100301
  2. FORTEO [Suspect]
     Dosage: 20 UG, DAILY (1/D)
     Dates: start: 20100401, end: 20100415
  3. ULTRACET [Concomitant]
     Indication: ARTHRITIS
     Dosage: UNK, 3/D
  4. CLONAZEPAM [Concomitant]
     Indication: ANXIETY
     Dosage: UNK, 4/D
  5. HYDROCHLOROTHIAZIDE [Concomitant]
     Indication: FLUID RETENTION
     Dosage: 1/2 PILL DAILY
  6. AMLODIPINE [Concomitant]
     Indication: HYPERTENSION

REACTIONS (4)
  - COLITIS [None]
  - INTESTINAL OBSTRUCTION [None]
  - JOINT ARTHROPLASTY [None]
  - PROCEDURAL PAIN [None]
